FAERS Safety Report 5779808-6 (Version None)
Quarter: 2008Q2

REPORT INFORMATION
  Report Type: 
  Country: None (occurrence: None)
  Receive Date: 20080618
  Receipt Date: 20080605
  Transmission Date: 20081010
  Serious: Yes (Hospitalization)
  Sender: FDA-Public Use
  Company Number: B0524885A

PATIENT
  Age: 72 Year
  Sex: Male

DRUGS (2)
  1. ALBENDAZOLE (FORMULATION UNKNOWN) (GENERIC) (ALBENDAZOLE) [Suspect]
     Indication: HEPATIC CYST
  2. SURGERY [Concomitant]

REACTIONS (4)
  - BONE MARROW FAILURE [None]
  - CYTOLYTIC HEPATITIS [None]
  - CYTOMEGALOVIRUS ANTIBODY POSITIVE [None]
  - PANCYTOPENIA [None]
